FAERS Safety Report 5465996-8 (Version None)
Quarter: 2007Q3

REPORT INFORMATION
  Report Type: 
  Country: None (occurrence: None)
  Receive Date: 20070924
  Receipt Date: 20070913
  Transmission Date: 20080115
  Serious: No
  Sender: FDA-Public Use
  Company Number: US-BOEHRINGER INGELHEIM PHARMACEUTICALS, INC.-2007-BP-21105BP

PATIENT
  Sex: Female

DRUGS (10)
  1. SPIRIVA [Suspect]
     Indication: ASTHMA
     Route: 055
     Dates: start: 20060101
  2. QVAR 40 [Concomitant]
     Indication: ASTHMA
  3. ISOPTIN [Concomitant]
     Indication: MITRAL VALVE PROLAPSE
  4. PRILOSEC [Concomitant]
  5. MEVACOR [Concomitant]
     Indication: BLOOD CHOLESTEROL
  6. SYNTHROID [Concomitant]
     Indication: HYPOTHYROIDISM
  7. TRIAMPTERINE [Concomitant]
  8. ASPIRIN [Concomitant]
  9. ALBUTEROL [Concomitant]
     Indication: ASTHMA
  10. POTASSIUM CHLORIDE [Concomitant]

REACTIONS (4)
  - DRY EYE [None]
  - DRY MOUTH [None]
  - DYSPNOEA [None]
  - NASAL DRYNESS [None]
